FAERS Safety Report 14321572 (Version 3)
Quarter: 2018Q4

REPORT INFORMATION
  Report Type: Spontaneous
  Country: RO (occurrence: RO)
  Receive Date: 20171223
  Receipt Date: 20181004
  Transmission Date: 20190204
  Serious: Yes (Hospitalization, Other)
  Sender: FDA-Public Use
  Company Number: RO-MYLANLABS-2017M1080849

PATIENT
  Age: 5 Year
  Sex: Female
  Weight: 27 kg

DRUGS (4)
  1. LAMOTRIGINE. [Suspect]
     Active Substance: LAMOTRIGINE
     Dosage: 25 MG, QD, (25 MG, QD, WEEK 1 2? 25 MG/DAY)
     Route: 065
  2. LAMOTRIGINE. [Suspect]
     Active Substance: LAMOTRIGINE
     Dosage: 100 MG, QD
     Route: 065
  3. DEPAKINE                           /00228502/ [Interacting]
     Active Substance: VALPROATE SODIUM
     Indication: EPILEPSY
     Dosage: 600 MG, QD,(WEEK 1 - 2?25 MG/DAY, WEEK 3 -2?50 MG/DAY)
     Route: 065
  4. LAMOTRIGINE. [Suspect]
     Active Substance: LAMOTRIGINE
     Indication: EPILEPSY
     Dosage: 50 MG, QD
     Route: 065

REACTIONS (24)
  - Lip dry [Recovering/Resolving]
  - Salivary hypersecretion [Unknown]
  - Vomiting [Recovering/Resolving]
  - Dermatitis bullous [Recovering/Resolving]
  - Chapped lips [Recovering/Resolving]
  - Condition aggravated [Recovering/Resolving]
  - Pharyngeal inflammation [Recovering/Resolving]
  - Rash vesicular [Recovering/Resolving]
  - Drug interaction [Unknown]
  - Facial pain [Recovering/Resolving]
  - Conjunctival hyperaemia [Recovering/Resolving]
  - Rash maculo-papular [Recovering/Resolving]
  - Drug ineffective [Unknown]
  - Gastroenteritis norovirus [Unknown]
  - Rash [Recovering/Resolving]
  - Pruritus [Recovering/Resolving]
  - Diarrhoea [Recovering/Resolving]
  - Stevens-Johnson syndrome [Recovered/Resolved]
  - Pyrexia [Recovering/Resolving]
  - Epilepsy [Recovered/Resolved]
  - Haemorrhage [Recovering/Resolving]
  - Dysphagia [Recovering/Resolving]
  - Rotavirus infection [Unknown]
  - Abdominal pain [Recovering/Resolving]
